FAERS Safety Report 9032256 (Version 1)
Quarter: 2013Q1

REPORT INFORMATION
  Report Type: Spontaneous
  Country: BR (occurrence: BR)
  Receive Date: 20130122
  Receipt Date: 20130122
  Transmission Date: 20140127
  Serious: Yes (Other)
  Sender: FDA-Public Use
  Company Number: PHHY2013BR005054

PATIENT
  Sex: Female

DRUGS (9)
  1. DIOVAN HCT [Suspect]
     Indication: HYPERTENSION
     Dosage: 1 DF (80 MG VALS/ 12.5 MG HCTZ), DAILY AT NIGHT
     Route: 048
  2. DIOVAN HCT [Suspect]
     Dosage: 2 DF (160 MG VALS/ 12.5 MG HCTZ), DAILY, 1 IN MORNING AND 1 AT AFTERNOON
     Route: 048
  3. VENOVAZ [Concomitant]
     Indication: THROMBOSIS
     Dosage: EVERY 12 HORS
  4. LYRICA [Concomitant]
     Indication: PAIN IN EXTREMITY
  5. OS-CAL D [Concomitant]
     Indication: OSTEOPENIA
  6. OS-CAL D [Concomitant]
     Indication: OSTEOPOROSIS
  7. ROSUVASTATIN [Concomitant]
     Indication: BLOOD CHOLESTEROL INCREASED
  8. ROSUVASTATIN [Concomitant]
     Indication: BLOOD TRIGLYCERIDES ABNORMAL
  9. SYNTHROID [Concomitant]

REACTIONS (4)
  - Vascular injury [Recovered/Resolved]
  - Epistaxis [Recovered/Resolved]
  - Blood pressure increased [Recovered/Resolved]
  - Anxiety [Recovered/Resolved]
